FAERS Safety Report 9422319 (Version 2)
Quarter: 2013Q3

REPORT INFORMATION
  Report Type: Report from Study
  Country: US (occurrence: US)
  Receive Date: 20130726
  Receipt Date: 20130906
  Transmission Date: 20140515
  Serious: Yes (Hospitalization)
  Sender: FDA-Public Use
  Company Number: US-SANOFI-AVENTIS-2013SA074169

PATIENT
  Age: 68 Year
  Sex: Male
  Weight: 77.55 kg

DRUGS (20)
  1. CABAZITAXEL [Suspect]
     Indication: PROSTATE CANCER
     Route: 042
     Dates: start: 20130619, end: 20130619
  2. ANTINEOPLASTIC AGENTS [Suspect]
     Indication: PROSTATE CANCER
     Route: 042
     Dates: start: 20130612, end: 20130612
  3. ALDACTONE [Concomitant]
     Route: 048
     Dates: start: 20121128
  4. CALTRATE + D [Concomitant]
     Route: 048
     Dates: start: 2010
  5. LOPRESSOR [Concomitant]
     Route: 048
     Dates: start: 2010
  6. PRILOSEC [Concomitant]
     Route: 048
     Dates: start: 2010
  7. VITAMIN B COMPLEX [Concomitant]
     Route: 048
     Dates: start: 2010
  8. LUPRON [Concomitant]
     Route: 030
     Dates: start: 2010
  9. NEULASTA [Concomitant]
     Route: 058
     Dates: start: 20130620
  10. PREDNISONE [Concomitant]
     Route: 058
     Dates: start: 20130619
  11. IBUPROFEN [Concomitant]
     Dosage: Q4 AND 6H
     Route: 048
     Dates: start: 20130612
  12. INFED [Concomitant]
     Route: 042
     Dates: start: 20130607
  13. TYLENOL [Concomitant]
     Route: 048
     Dates: start: 20130607
  14. DIPHENHYDRAMINE HYDROCHLORIDE [Concomitant]
     Route: 042
     Dates: start: 20130607
  15. ALOXI [Concomitant]
     Indication: NAUSEA
     Dosage: 20 MG, AS REQUIRED
     Route: 042
     Dates: start: 20130607
  16. ALOXI [Concomitant]
     Indication: PROPHYLAXIS
     Dosage: 20 MG, AS REQUIRED
     Route: 042
     Dates: start: 20130607
  17. DECADRON [Concomitant]
     Indication: NAUSEA
     Dosage: AS REQUIRED
     Route: 042
     Dates: start: 20130619
  18. DECADRON [Concomitant]
     Indication: PROPHYLAXIS
     Dosage: AS REQUIRED
     Route: 042
     Dates: start: 20130619
  19. PEPCID [Concomitant]
     Indication: NAUSEA
     Dosage: 20 MG, AS REQUIRED
     Route: 042
     Dates: start: 201306
  20. PEPCID [Concomitant]
     Indication: PROPHYLAXIS
     Dosage: 20 MG, AS REQUIRED
     Route: 042
     Dates: start: 201306

REACTIONS (3)
  - Nausea [Recovered/Resolved]
  - Vomiting [Recovered/Resolved]
  - Pleural effusion [Recovered/Resolved]
